FAERS Safety Report 7126319-1 (Version None)
Quarter: 2010Q4

REPORT INFORMATION
  Report Type: 
  Country: None (occurrence: None)
  Receive Date: 20101129
  Receipt Date: 20100607
  Transmission Date: 20110411
  Serious: No
  Sender: FDA-Public Use
  Company Number: A0865950A

PATIENT
  Age: 89 Year
  Sex: Male

DRUGS (7)
  1. DIGOXIN [Suspect]
  2. ATENOLOL [Suspect]
  3. LISINOPRIL [Suspect]
  4. LASIX [Suspect]
  5. UROXATRAL [Suspect]
     Route: 048
     Dates: start: 20100201
  6. TAMSULOSIN HYDROCHLORIDE [Concomitant]
  7. AVODART [Concomitant]

REACTIONS (4)
  - DIZZINESS [None]
  - HYPERTENSION [None]
  - POLLAKIURIA [None]
  - WEIGHT DECREASED [None]
